FAERS Safety Report 16525735 (Version 1)
Quarter: 2019Q3

REPORT INFORMATION
  Report Type: Report from Study
  Country: FR (occurrence: FR)
  Receive Date: 20190703
  Receipt Date: 20190703
  Transmission Date: 20191004
  Serious: Yes (Hospitalization)
  Sender: FDA-Public Use
  Company Number: FR-CELLTRION INC.-2019FR022340

PATIENT

DRUGS (2)
  1. INFLIXIMAB PFIZER (UNKNOWN) [Suspect]
     Active Substance: INFLIXIMAB
     Indication: RHEUMATIC DISORDER
     Dosage: 5 MG/KG, EVERY 8 WEEKS
     Route: 065
     Dates: start: 20151002
  2. DERMOVAL [CLOBETASOL PROPIONATE] [Concomitant]
     Indication: PSORIASIS
     Dosage: UNK
     Dates: start: 20181023

REACTIONS (2)
  - Condition aggravated [Recovered/Resolved]
  - Rheumatic disorder [Recovered/Resolved]

NARRATIVE: CASE EVENT DATE: 20190502
